FAERS Safety Report 23666820 (Version 1)
Quarter: 2024Q1

REPORT INFORMATION
  Report Type: Spontaneous
  Country: JP (occurrence: JP)
  Receive Date: 20240325
  Receipt Date: 20240325
  Transmission Date: 20240410
  Serious: Yes (Other)
  Sender: FDA-Public Use
  Company Number: JP-JNJFOC-20240366243

PATIENT

DRUGS (3)
  1. TRABECTEDIN [Suspect]
     Active Substance: TRABECTEDIN
     Indication: Soft tissue sarcoma
     Route: 041
  2. TRABECTEDIN [Suspect]
     Active Substance: TRABECTEDIN
     Route: 041
  3. TRABECTEDIN [Suspect]
     Active Substance: TRABECTEDIN
     Route: 041

REACTIONS (2)
  - Cardiac failure [Unknown]
  - Renal impairment [Unknown]
